FAERS Safety Report 7911533-5 (Version None)
Quarter: 2011Q4

REPORT INFORMATION
  Report Type: 
  Country: None (occurrence: None)
  Receive Date: 20111114
  Receipt Date: 20111101
  Transmission Date: 20120403
  Serious: Yes (Hospitalization)
  Sender: FDA-Public Use
  Company Number: SD-ELI_LILLY_AND_COMPANY-SD201111002035

PATIENT
  Sex: Female

DRUGS (1)
  1. CYMBALTA [Suspect]
     Indication: DIABETIC NEUROPATHY
     Dosage: 60 MG, QD
     Route: 048

REACTIONS (2)
  - HEART RATE INCREASED [None]
  - ARRHYTHMIA [None]
